FAERS Safety Report 10530354 (Version 1)
Quarter: 2014Q4

REPORT INFORMATION
  Report Type: Spontaneous
  Country: US (occurrence: None)
  Receive Date: 20141020
  Receipt Date: 20141020
  Transmission Date: 20150528
  Serious: Yes (Disabling)
  Sender: FDA-Public Use
  Company Number: None

PATIENT
  Age: 36 Year
  Sex: Female
  Weight: 72.58 kg

DRUGS (1)
  1. LARIAM [Suspect]
     Active Substance: MEFLOQUINE HYDROCHLORIDE
     Indication: MALARIA
     Dosage: 1 PILL WEEKLY TAKEN BY MOUTH
     Route: 048
     Dates: start: 20110501, end: 20120131

REACTIONS (26)
  - Depression [None]
  - Paranoia [None]
  - Mood swings [None]
  - Dizziness [None]
  - Visual impairment [None]
  - Tinnitus [None]
  - Abdominal pain [None]
  - Confusional state [None]
  - Suicidal ideation [None]
  - Vertigo [None]
  - Headache [None]
  - Nausea [None]
  - Back pain [None]
  - Musculoskeletal pain [None]
  - Anxiety [None]
  - Night sweats [None]
  - Nightmare [None]
  - Tremor [None]
  - Diarrhoea [None]
  - Gait disturbance [None]
  - Insomnia [None]
  - Panic attack [None]
  - Fatigue [None]
  - Arthralgia [None]
  - Disturbance in attention [None]
  - Neck pain [None]

NARRATIVE: CASE EVENT DATE: 20110501
